FAERS Safety Report 23074942 (Version 1)
Quarter: 2023Q4

REPORT INFORMATION
  Report Type: Spontaneous
  Country: US (occurrence: US)
  Receive Date: 20231017
  Receipt Date: 20231017
  Transmission Date: 20240110
  Serious: Yes (Life-Threatening, Hospitalization)
  Sender: FDA-Public Use
  Company Number: US-MYLANLABS-2023M1108906

PATIENT
  Age: 21 Year
  Sex: Female

DRUGS (3)
  1. VENLAFAXINE [Suspect]
     Active Substance: VENLAFAXINE HYDROCHLORIDE
     Indication: Depression
     Dosage: 14100 MILLIGRAM,INGESTION OF VENLAFAXINE EXTENDED-RELEASE WITH A DOSE OF 14100MG (INTENTIONAL OVERDO
     Route: 048
  2. NOREPINEPHRINE [Suspect]
     Active Substance: NOREPINEPHRINE
     Indication: Hypotension
     Dosage: UNK, INFUSION
     Route: 065
  3. PHENYLEPHRINE [Suspect]
     Active Substance: PHENYLEPHRINE HYDROCHLORIDE
     Indication: Hypotension
     Dosage: UNK, INFUSION
     Route: 065

REACTIONS (10)
  - Sinus tachycardia [Recovering/Resolving]
  - Electrocardiogram QT prolonged [Recovering/Resolving]
  - Generalised tonic-clonic seizure [Unknown]
  - Cardiogenic shock [Recovering/Resolving]
  - Left ventricular dysfunction [Recovering/Resolving]
  - Intentional overdose [Recovering/Resolving]
  - Suicide attempt [Unknown]
  - Hypotension [Recovering/Resolving]
  - Multiple organ dysfunction syndrome [Unknown]
  - Drug ineffective [Unknown]
